FAERS Safety Report 9991816 (Version 2)
Quarter: 2014Q2

REPORT INFORMATION
  Report Type: Report from Study
  Country: US (occurrence: US)
  Receive Date: 20140310
  Receipt Date: 20140403
  Transmission Date: 20141212
  Serious: Yes (Other)
  Sender: FDA-Public Use
  Company Number: US-ELI_LILLY_AND_COMPANY-US201403000247

PATIENT
  Age: 69 Year
  Sex: Male

DRUGS (17)
  1. GEMCITABINE HYDROCHLORIDE [Suspect]
     Indication: NEOPLASM
     Dosage: 1000 MG, CYCLICAL
     Route: 042
     Dates: start: 20140127
  2. GEMCITABINE HYDROCHLORIDE [Suspect]
     Indication: LYMPHOMA
  3. OTHER PHARMA COMPANY INV DRUG [Suspect]
     Indication: NEOPLASM
     Dosage: 45 MG, CYCLICAL
     Route: 048
     Dates: start: 20140128
  4. OTHER PHARMA COMPANY INV DRUG [Suspect]
     Indication: LYMPHOMA
  5. BABY ASPIRIN [Concomitant]
     Indication: PRODUCT USED FOR UNKNOWN INDICATION
     Dosage: 81 MG, QD
     Route: 048
     Dates: start: 1995
  6. SIMVASTATIN [Concomitant]
     Indication: HYPERCHOLESTEROLAEMIA
     Dosage: 40 MG, UNK
     Dates: start: 1995
  7. DIGOXIN [Concomitant]
     Indication: ATRIAL FIBRILLATION
     Dosage: 0.25 MG, UNK
     Route: 048
     Dates: start: 1995
  8. LISINOPRIL [Concomitant]
     Indication: HYPERTENSION
     Dosage: UNK
     Route: 048
     Dates: start: 2009
  9. METFORMIN [Concomitant]
     Indication: DIABETES MELLITUS
     Dosage: 750 MG, QD
     Route: 048
     Dates: start: 1995
  10. GLIPIZIDE [Concomitant]
     Indication: DIABETES MELLITUS
     Dosage: 10 MG, QD
     Route: 048
     Dates: start: 1995
  11. LANTUS [Concomitant]
     Indication: DIABETES MELLITUS
     Dosage: 75 IU, QD
     Route: 058
     Dates: start: 2001
  12. XARELTO [Concomitant]
     Indication: ATRIAL FIBRILLATION
     Dosage: 20 MG, QD
     Route: 048
     Dates: start: 20140102
  13. TYLENOL                            /00020001/ [Concomitant]
     Indication: PYREXIA
     Dosage: 650 MG, QD
     Route: 048
     Dates: start: 20140130
  14. LEVAQUIN [Concomitant]
     Indication: NEUTROPENIA
     Dosage: 500 MG, QD
     Route: 048
     Dates: start: 20140203, end: 20140209
  15. METOPROLOL [Concomitant]
     Indication: PRODUCT USED FOR UNKNOWN INDICATION
  16. AMBIEN [Concomitant]
     Indication: INSOMNIA
     Dosage: UNK
     Dates: start: 20140204
  17. MEGACE [Concomitant]
     Indication: DECREASED APPETITE
     Dosage: UNK
     Dates: start: 20140217

REACTIONS (3)
  - Thrombocytopenia [Recovered/Resolved]
  - Fatigue [Not Recovered/Not Resolved]
  - Asthenia [Not Recovered/Not Resolved]
